FAERS Safety Report 19714889 (Version 1)
Quarter: 2021Q3

REPORT INFORMATION
  Report Type: Other
  Country: CA (occurrence: CA)
  Receive Date: 20210818
  Receipt Date: 20210818
  Transmission Date: 20211014
  Serious: Yes (Other)
  Sender: FDA-Public Use
  Company Number: CA-APOTEX-2021AP035445

PATIENT
  Sex: Female

DRUGS (3)
  1. APO?FINGOLIMOD [Suspect]
     Active Substance: FINGOLIMOD HYDROCHLORIDE
     Indication: NEUTROPENIA
     Dosage: 0.5 MILLIGRAM, QD
     Route: 048
     Dates: start: 20200206, end: 20210715
  2. GILENYA [Concomitant]
     Active Substance: FINGOLIMOD HYDROCHLORIDE
     Indication: PRODUCT USED FOR UNKNOWN INDICATION
     Dosage: UNK
     Route: 065
  3. AUBAGIO [Concomitant]
     Active Substance: TERIFLUNOMIDE
     Indication: PRODUCT USED FOR UNKNOWN INDICATION
     Dosage: UNK
     Route: 065

REACTIONS (1)
  - Surgery [Unknown]
